FAERS Safety Report 17985085 (Version 2)
Quarter: 2021Q1

REPORT INFORMATION
  Report Type: Spontaneous
  Country: GB (occurrence: GB)
  Receive Date: 20200706
  Receipt Date: 20210201
  Transmission Date: 20210419
  Serious: Yes (Hospitalization, Other)
  Sender: FDA-Public Use
  Company Number: GB-VIIV HEALTHCARE LIMITED-GB2020EME116192

PATIENT
  Sex: Male

DRUGS (3)
  1. ZEFFIX [Suspect]
     Active Substance: LAMIVUDINE
     Indication: PRODUCT USED FOR UNKNOWN INDICATION
     Dosage: UNK UNK, 1D,100
  2. ABACAVIR. [Suspect]
     Active Substance: ABACAVIR
     Indication: PRODUCT USED FOR UNKNOWN INDICATION
     Dosage: UNK UNK, 1D,300
  3. EFAVIRENZ. [Suspect]
     Active Substance: EFAVIRENZ
     Indication: PRODUCT USED FOR UNKNOWN INDICATION
     Dosage: UNK UNK, 1D,600

REACTIONS (7)
  - Lung neoplasm malignant [Unknown]
  - Feeling abnormal [Unknown]
  - Hospitalisation [Unknown]
  - Lung cancer metastatic [Unknown]
  - Malaise [Unknown]
  - Metastases to central nervous system [Unknown]
  - Life expectancy shortened [Unknown]
